FAERS Safety Report 9463634 (Version 1)
Quarter: 2013Q3

REPORT INFORMATION
  Report Type: Report from Study
  Country: IN (occurrence: IN)
  Receive Date: 20130819
  Receipt Date: 20130819
  Transmission Date: 20140515
  Serious: Yes (Disabling, Other)
  Sender: FDA-Public Use
  Company Number: PHHY2013IN086478

PATIENT
  Age: 74 Year
  Sex: Male
  Weight: 80 kg

DRUGS (4)
  1. EXELON PATCH [Suspect]
     Indication: DEMENTIA ALZHEIMER^S TYPE
     Dosage: 9.5 MG, DAILY
     Route: 062
     Dates: start: 20130503
  2. RELGIN [Concomitant]
     Indication: PARKINSON^S DISEASE
     Dosage: 1 MG, DAILY
     Route: 048
     Dates: start: 20130503
  3. HEMIN [Concomitant]
     Indication: MEDICAL DIET
     Dosage: UNK UKN, UNK
     Dates: start: 20130503
  4. DONEP M [Concomitant]
     Indication: NEURODEGENERATIVE DISORDER
     Dosage: UNK UKN, UNK
     Dates: start: 20130503

REACTIONS (8)
  - Apraxia [Not Recovered/Not Resolved]
  - Syncope [Unknown]
  - Delusion [Not Recovered/Not Resolved]
  - Hallucination, visual [Not Recovered/Not Resolved]
  - Urinary incontinence [Unknown]
  - Decreased appetite [Unknown]
  - Dizziness [Unknown]
  - Hypersomnia [Unknown]
